FAERS Safety Report 7650578-X (Version None)
Quarter: 2011Q3

REPORT INFORMATION
  Report Type: 
  Country: None (occurrence: None)
  Receive Date: 20110727
  Receipt Date: 20110712
  Transmission Date: 20111222
  Serious: Yes (Death, Other)
  Sender: FDA-Public Use
  Company Number: 2011AP001476

PATIENT
  Age: 90 Year
  Sex: Female

DRUGS (1)
  1. DONEPEZIL HCL [Suspect]
     Indication: PRODUCT USED FOR UNKNOWN INDICATION
     Route: 048
     Dates: start: 20110627

REACTIONS (2)
  - CARDIAC ARREST [None]
  - GASTROINTESTINAL HAEMORRHAGE [None]
